FAERS Safety Report 8400495 (Version 2)
Quarter: 2013Q1

REPORT INFORMATION
  Report Type: Spontaneous
  Country: US (occurrence: US)
  Receive Date: 20120210
  Receipt Date: 20130219
  Transmission Date: 20140127
  Serious: Yes (Other)
  Sender: FDA-Public Use
  Company Number: US-BRISTOL-MYERS SQUIBB COMPANY-15674724

PATIENT
  Age: 76 Year
  Sex: Female

DRUGS (9)
  1. ORENCIA [Suspect]
     Indication: RHEUMATOID ARTHRITIS
     Dosage: LAST INFUSION ON 10FEB2011
     Route: 042
     Dates: start: 20080628
  2. TYLENOL [Concomitant]
  3. ASMANEX [Concomitant]
  4. SIMVASTATIN [Concomitant]
  5. LEVOTHYROID [Concomitant]
  6. ALBUTEROL [Concomitant]
  7. CALCIUM + VITAMIN D [Concomitant]
  8. FISH OIL [Concomitant]
  9. VITAMIN E [Concomitant]

REACTIONS (1)
  - Transitional cell carcinoma [Unknown]
